FAERS Safety Report 8592526-4 (Version None)
Quarter: 2012Q3

REPORT INFORMATION
  Report Type: 
  Country: None (occurrence: None)
  Receive Date: 20120814
  Receipt Date: 20120810
  Transmission Date: 20120928
  Serious: Yes (Hospitalization, Other)
  Sender: FDA-Public Use
  Company Number: PHHY2009JP33612

PATIENT
  Sex: Male

DRUGS (28)
  1. TASIGNA [Suspect]
     Dosage: 400 MG, DAILY
     Route: 048
     Dates: start: 20100326, end: 20100724
  2. TASIGNA [Suspect]
     Dosage: 400 MG, DAILY
     Route: 048
     Dates: start: 20100809, end: 20101206
  3. GLUCOBAY [Concomitant]
     Indication: DIABETES MELLITUS
     Dosage: 150 MG, UNK
     Route: 048
     Dates: start: 20080611, end: 20100122
  4. TASIGNA [Suspect]
     Indication: CHRONIC MYELOID LEUKAEMIA
     Dosage: 800 MG, DAILY
     Route: 048
     Dates: start: 20090508, end: 20090512
  5. AMARYL [Suspect]
     Dosage: 2 MG,DAILY
     Route: 048
     Dates: start: 20090807, end: 20090820
  6. AMARYL [Suspect]
     Dosage: 1 MG,DAILY
     Route: 048
     Dates: start: 20100312, end: 20100422
  7. SENNOSIDE [Concomitant]
     Indication: CONSTIPATION
     Dosage: 24 MG, UNK
     Route: 048
     Dates: start: 20080402, end: 20101108
  8. KAMAG G [Concomitant]
     Indication: DIABETES MELLITUS
     Dosage: 3.0 G, UNK
     Route: 048
     Dates: start: 20080402, end: 20090822
  9. STOGAR [Concomitant]
     Dosage: 20 MG, UNK
     Route: 048
     Dates: start: 20090512
  10. TASIGNA [Suspect]
     Dosage: 800 MG DAILY
     Route: 048
     Dates: start: 20090522, end: 20090602
  11. TASIGNA [Suspect]
     Dosage: 400 MG, DAILY
     Route: 048
     Dates: start: 20101213, end: 20110627
  12. AMARYL [Suspect]
     Dosage: 3 MG, DAILY
     Route: 048
     Dates: start: 20090821, end: 20100310
  13. JANUVIA [Suspect]
     Dosage: 50 MG, DAILY
     Route: 048
     Dates: start: 20100927, end: 20120829
  14. TASIGNA [Suspect]
     Dosage: 400 MG, DAILY
     Route: 048
     Dates: start: 20091218, end: 20100308
  15. AMARYL [Suspect]
     Dosage: 2 MG, DAILY
     Route: 048
     Dates: start: 20100423, end: 20110509
  16. JANUVIA [Suspect]
     Indication: DIABETES MELLITUS
     Dosage: 50 MG, DAILY
     Route: 048
     Dates: start: 20100123, end: 20100310
  17. GLIMEPIRIDE [Concomitant]
     Indication: DIABETES MELLITUS
     Dosage: 1 MG, UNK
     Route: 048
     Dates: start: 20110510, end: 20120116
  18. GLIMICRON [Concomitant]
     Indication: DIABETES MELLITUS
     Dosage: 20 MG
     Route: 048
     Dates: start: 20120320
  19. PLAVIX [Concomitant]
     Dosage: 50 MG
     Route: 048
     Dates: start: 20120227, end: 20120511
  20. SENNOSIDE [Concomitant]
     Indication: DIABETES MELLITUS
  21. TICLOPIDINE HYDROCHLORIDE [Concomitant]
     Dosage: 100 MG
     Route: 048
     Dates: start: 20120511
  22. TASIGNA [Suspect]
     Dosage: 400 MG DAILY
     Route: 048
     Dates: start: 20090807, end: 20091211
  23. JANUVIA [Suspect]
     Dosage: 50 MG, DAILY
     Route: 048
     Dates: start: 20100312, end: 20100724
  24. AMARYL [Suspect]
     Indication: DIABETES MELLITUS
     Dosage: 1 MG,DAILY
     Route: 048
     Dates: start: 20081217, end: 20090806
  25. TASIGNA [Suspect]
     Dosage: 400 MG DAILY
     Route: 048
     Dates: start: 20090612, end: 20090724
  26. HYDREA [Concomitant]
     Indication: CHRONIC MYELOID LEUKAEMIA
     Dosage: 1000 MG, UNK
     Route: 048
     Dates: end: 20090508
  27. KAMAG G [Concomitant]
     Indication: CONSTIPATION
  28. ALOSENN [Concomitant]
     Indication: CONSTIPATION
     Dosage: 3 G, UNK
     Route: 048
     Dates: start: 20101108

REACTIONS (16)
  - HYPOGLYCAEMIA [None]
  - RASH PAPULAR [None]
  - PLATELET COUNT DECREASED [None]
  - WEIGHT DECREASED [None]
  - BACTERIAL INFECTION [None]
  - MUSCULAR WEAKNESS [None]
  - BLOOD GLUCOSE INCREASED [None]
  - ABDOMINAL DISCOMFORT [None]
  - ABDOMINAL PAIN UPPER [None]
  - BLOOD PHOSPHORUS DECREASED [None]
  - ALTERED STATE OF CONSCIOUSNESS [None]
  - ABDOMINAL DISTENSION [None]
  - DECREASED APPETITE [None]
  - RASH GENERALISED [None]
  - ELECTROCARDIOGRAM QT PROLONGED [None]
  - LACUNAR INFARCTION [None]
